FAERS Safety Report 4642837-X (Version None)
Quarter: 2005Q2

REPORT INFORMATION
  Report Type: 
  Country: None (occurrence: None)
  Receive Date: 20050421
  Receipt Date: 20050412
  Transmission Date: 20051028
  Serious: Yes (Death, Hospitalization, Other)
  Sender: FDA-Public Use
  Company Number: 2005-04-0702

PATIENT
  Age: 57 Year
  Sex: Male

DRUGS (8)
  1. PEG-INTRON [Suspect]
     Indication: HEPATITIS C
     Dosage: 80 MCG QW SUBCUTANEOUS
     Route: 058
     Dates: start: 20050202, end: 20050219
  2. REBETOL [Suspect]
     Indication: HEPATITIS C
     Dosage: 600 MG ORAL
     Route: 048
     Dates: start: 20050202, end: 20050222
  3. DOGMATYL CAPSULES [Concomitant]
  4. FLUCAM (AMPIROXICAM) CAPSULES [Concomitant]
  5. URSO TABELTS [Concomitant]
  6. OMEPRAZOLE [Concomitant]
  7. SPIRONOLACTONE TABLETS [Concomitant]
  8. NOVOLIN N INJECTABLE [Concomitant]

REACTIONS (14)
  - ANURIA [None]
  - DISSEMINATED INTRAVASCULAR COAGULATION [None]
  - DIZZINESS [None]
  - FUNGAL INFECTION [None]
  - GENERAL PHYSICAL HEALTH DETERIORATION [None]
  - HEPATIC FAILURE [None]
  - MULTI-ORGAN FAILURE [None]
  - OXYGEN SATURATION DECREASED [None]
  - PNEUMONIA VIRAL [None]
  - PULMONARY OEDEMA [None]
  - RESPIRATORY FAILURE [None]
  - SPUTUM CULTURE POSITIVE [None]
  - STAPHYLOCOCCAL INFECTION [None]
  - VIRUS SEROLOGY TEST POSITIVE [None]
